FAERS Safety Report 16909700 (Version 3)
Quarter: 2019Q4

REPORT INFORMATION
  Report Type: Spontaneous
  Country: CH (occurrence: CH)
  Receive Date: 20191011
  Receipt Date: 20191029
  Transmission Date: 20200122
  Serious: Yes (Hospitalization, Other)
  Sender: FDA-Public Use
  Company Number: CH-MYLANLABS-2019M1094451

PATIENT
  Age: 25 Year
  Sex: Male

DRUGS (5)
  1. CREON [Concomitant]
     Active Substance: PANCRELIPASE AMYLASE\PANCRELIPASE LIPASE\PANCRELIPASE PROTEASE
     Indication: CYSTIC FIBROSIS
     Dosage: UNK
  2. TOBI PODHALER [Suspect]
     Active Substance: TOBRAMYCIN
     Indication: PSEUDOMONAS INFECTION
     Dosage: UNK
     Dates: end: 20190830
  3. TOBI PODHALER [Suspect]
     Active Substance: TOBRAMYCIN
     Indication: CYSTIC FIBROSIS
  4. FLUIMUCIL [Concomitant]
     Active Substance: ACETYLCYSTEINE
     Indication: CYSTIC FIBROSIS
     Dosage: UNK
  5. URSOFALK [Concomitant]
     Active Substance: URSODIOL
     Indication: CYSTIC FIBROSIS
     Dosage: UNK

REACTIONS (1)
  - Drug resistance [Not Recovered/Not Resolved]

NARRATIVE: CASE EVENT DATE: 20190903
